FAERS Safety Report 5522632-X (Version None)
Quarter: 2007Q4

REPORT INFORMATION
  Report Type: 
  Country: None (occurrence: None)
  Receive Date: 20071120
  Receipt Date: 20071110
  Transmission Date: 20080405
  Serious: Yes (Hospitalization, Other)
  Sender: FDA-Public Use
  Company Number: US-ABBOTT-07P-163-0424291-00

PATIENT
  Sex: Female
  Weight: 53.118 kg

DRUGS (2)
  1. HUMIRA [Suspect]
     Indication: RHEUMATOID ARTHRITIS
     Route: 058
     Dates: start: 20070601, end: 20071025
  2. HUMIRA [Suspect]
     Route: 058
     Dates: start: 20071108

REACTIONS (3)
  - BLADDER PROLAPSE [None]
  - HAEMORRHAGE [None]
  - VENOUS HAEMORRHAGE [None]
